FAERS Safety Report 8809942 (Version 2)
Quarter: 2012Q4

REPORT INFORMATION
  Report Type: 
  Country: US (occurrence: US)
  Receive Date: 20120926
  Receipt Date: 20121024
  Transmission Date: 20130627
  Serious: Yes (Hospitalization, Disabling, Other)
  Sender: FDA-Public Use
  Company Number: US-009507513-1008USA03504

PATIENT

DRUGS (9)
  1. FOSAMAX [Suspect]
     Indication: OSTEOPENIA
     Dosage: 10 mg, UNK
     Route: 048
     Dates: start: 19991101, end: 20011125
  2. FOSAMAX [Suspect]
     Dosage: 70 mg, UNK
     Route: 048
     Dates: start: 20011227, end: 20061221
  3. ALENDRONATE SODIUM [Suspect]
     Indication: OSTEOPENIA
     Dosage: 70 mg, UNK
     Route: 048
     Dates: start: 20100106, end: 20100201
  4. CALCIUM (UNSPECIFIED) (+) VITAMIN D (UNSPECIFIED) [Concomitant]
  5. MK-9278 [Concomitant]
  6. OMEGA-3 MARINE TRIGLYCERIDES [Concomitant]
  7. MAGNESIUM (UNSPECIFIED) [Concomitant]
  8. FOSAMAX PLUS D [Suspect]
     Indication: OSTEOPENIA
     Dosage: 70mg/2800 IU, UNK
     Route: 048
     Dates: start: 20070123, end: 201002
  9. ALENDRONATE SODIUM [Suspect]
     Indication: OSTEOPENIA
     Dosage: UNK
     Route: 048
     Dates: start: 20090616, end: 20091018

REACTIONS (39)
  - Femur fracture [Unknown]
  - Osteoporosis [Unknown]
  - Stress fracture [Unknown]
  - Femur fracture [Unknown]
  - Low turnover osteopathy [Unknown]
  - Tooth disorder [Unknown]
  - Blood cholesterol increased [Not Recovered/Not Resolved]
  - Feeling abnormal [Unknown]
  - Oral pustule [Recovered/Resolved]
  - Upper-airway cough syndrome [Unknown]
  - Clavicle fracture [Unknown]
  - Paraesthesia [Unknown]
  - Compression fracture [Unknown]
  - Scoliosis [Unknown]
  - Intervertebral disc degeneration [Unknown]
  - Back pain [Not Recovered/Not Resolved]
  - Osteoarthritis [Not Recovered/Not Resolved]
  - Vitamin B12 deficiency [Unknown]
  - Radiculopathy [Unknown]
  - Exostosis [Unknown]
  - Arthralgia [Unknown]
  - Vitamin D abnormal [Unknown]
  - Fall [Unknown]
  - Road traffic accident [Unknown]
  - Intervertebral disc degeneration [Unknown]
  - Exostosis [Unknown]
  - Oedema peripheral [Unknown]
  - Exostosis [Unknown]
  - Foot fracture [Unknown]
  - Repetitive strain injury [Unknown]
  - Hand deformity [Unknown]
  - Joint stiffness [Unknown]
  - Tonsillar disorder [Unknown]
  - Uterine leiomyoma [Unknown]
  - Stress urinary incontinence [Unknown]
  - Hysterectomy [Unknown]
  - Vaginal laceration [Unknown]
  - Ovarian cyst [Unknown]
  - Bone loss [Unknown]
